FAERS Safety Report 8013576-2 (Version None)
Quarter: 2011Q4

REPORT INFORMATION
  Report Type: 
  Country: None (occurrence: None)
  Receive Date: 20111227
  Receipt Date: 20111227
  Transmission Date: 20120403
  Serious: Yes (Hospitalization)
  Sender: FDA-Public Use
  Company Number: None

PATIENT
  Age: 64 Year
  Sex: Male
  Weight: 88.3 kg

DRUGS (2)
  1. LITHIUM CARBONATE [Suspect]
     Indication: RENAL FAILURE ACUTE
     Dosage: MG BID PO
     Route: 048
  2. LISINOPRIL [Suspect]
     Indication: HYPERKALAEMIA
     Dosage: MG PO
     Route: 048

REACTIONS (2)
  - HYPERKALAEMIA [None]
  - RENAL FAILURE ACUTE [None]
